FAERS Safety Report 10220596 (Version 1)
Quarter: 2014Q2

REPORT INFORMATION
  Report Type: Spontaneous
  Country: US (occurrence: None)
  Receive Date: 20140605
  Receipt Date: 20140605
  Transmission Date: 20141212
  Serious: Yes (Life-Threatening, Hospitalization, Disabling, Other)
  Sender: FDA-Public Use
  Company Number: None

PATIENT
  Age: 45 Year
  Sex: Male
  Weight: 81.65 kg

DRUGS (2)
  1. OMEPRAZOLE 10MG [Suspect]
     Indication: GASTROOESOPHAGEAL REFLUX DISEASE
     Dosage: 1 PILL NIGHT, ONCE DAILY, TAKEN BY MOUTH?
     Route: 048
     Dates: start: 20110817, end: 20130911
  2. RISPERDONE 4MG 1 HS [Suspect]
     Indication: SCHIZOPHRENIA
     Dosage: ONE PILL, ONCE DAILY, TAKEN BY MOUTH
     Route: 048
     Dates: start: 20110518, end: 20130911

REACTIONS (8)
  - Lipoma [None]
  - Overdose [None]
  - Biliary tract disorder [None]
  - Pancreatitis acute [None]
  - Lung infection [None]
  - Gastrointestinal infection [None]
  - Orchitis [None]
  - Prostate infection [None]
